FAERS Safety Report 6823485-X (Version None)
Quarter: 2010Q3

REPORT INFORMATION
  Report Type: 
  Country: None (occurrence: None)
  Receive Date: 20100708
  Receipt Date: 20100629
  Transmission Date: 20110219
  Serious: Yes (Hospitalization)
  Sender: FDA-Public Use
  Company Number: US-JNJFOC-20100500414

PATIENT
  Age: 36 Year
  Sex: Male
  Weight: 94.35 kg

DRUGS (4)
  1. INVEGA SUSTENNA [Suspect]
     Indication: SCHIZOPHRENIA
     Route: 030
  2. INVEGA SUSTENNA [Suspect]
     Route: 030
  3. INVEGA SUSTENNA [Suspect]
     Route: 030
  4. SEROQUEL [Concomitant]
     Indication: INSOMNIA

REACTIONS (3)
  - HALLUCINATION, AUDITORY [None]
  - PARANOIA [None]
  - SELF INJURIOUS BEHAVIOUR [None]
